FAERS Safety Report 6553876-6 (Version None)
Quarter: 2010Q1

REPORT INFORMATION
  Report Type: 
  Country: None (occurrence: None)
  Receive Date: 20100127
  Receipt Date: 20100119
  Transmission Date: 20100710
  Serious: Yes (Death, Hospitalization)
  Sender: FDA-Public Use
  Company Number: US-ROCHE-674097

PATIENT
  Sex: Male
  Weight: 84.1 kg

DRUGS (3)
  1. BEVACIZUMAB [Suspect]
     Indication: NON-SMALL CELL LUNG CANCER
     Dosage: 15 MG/KG, Q21D, TOTAL DOSE: 1266MG
     Route: 065
     Dates: start: 20091119
  2. PEMETREXED [Concomitant]
     Indication: NON-SMALL CELL LUNG CANCER
     Dosage: 500 MG/M2, Q21D, TOTAL DAILY DOSE: 1035MG
     Route: 042
     Dates: start: 20091119
  3. CARBOPLATIN [Concomitant]
     Indication: NON-SMALL CELL LUNG CANCER
     Dosage: 5 AUC, Q21D, TOTAL DOSE: 514.1 MG
     Dates: start: 20091119

REACTIONS (3)
  - CARDIAC FAILURE CONGESTIVE [None]
  - PNEUMONIA [None]
  - PYREXIA [None]
